FAERS Safety Report 6420011-4 (Version None)
Quarter: 2009Q4

REPORT INFORMATION
  Report Type: 
  Country: None (occurrence: None)
  Receive Date: 20091029
  Receipt Date: 20080902
  Transmission Date: 20100525
  Serious: No
  Sender: FDA-Public Use
  Company Number: A0745701A

PATIENT
  Age: 58 Year
  Sex: Female

DRUGS (6)
  1. IMITREX [Suspect]
     Indication: MIGRAINE
     Route: 045
     Dates: start: 20050101, end: 20050101
  2. IMITREX [Suspect]
     Route: 048
     Dates: start: 20040101, end: 20040101
  3. FIORICET [Concomitant]
  4. HORMONE REPLACEMENT THERAPY [Concomitant]
  5. MAXALT [Concomitant]
  6. DEPAKOTE [Concomitant]

REACTIONS (1)
  - DRUG INEFFECTIVE [None]
